FAERS Safety Report 10020649 (Version 1)
Quarter: 2013Q4

REPORT INFORMATION
  Report Type: Spontaneous
  Country: US (occurrence: None)
  Receive Date: 20131024
  Receipt Date: 20131024
  Transmission Date: 20140711
  Serious: Yes (Hospitalization)
  Sender: FDA-Public Use
  Company Number: KAMADA LTD MFR # 43041

PATIENT
  Age: 71 Year
  Sex: Male

DRUGS (1)
  1. GLASSIA [Suspect]
     Indication: ALPHA-1 ANTI-TRYPSIN DECREASED
     Route: 042
     Dates: end: 20131014

REACTIONS (4)
  - Urticaria [None]
  - Blood glucose decreased [None]
  - Renal failure [None]
  - Hypotension [None]
